FAERS Safety Report 4986036-0 (Version None)
Quarter: 2006Q1

REPORT INFORMATION
  Report Type: 
  Country: None (occurrence: None)
  Receive Date: 20060309
  Receipt Date: 20050610
  Transmission Date: 20060701
  Serious: Yes (Other)
  Sender: FDA-Public Use
  Company Number: 407491

PATIENT
  Age: 19 Year
  Sex: Female
  Weight: 67.1 kg

DRUGS (1)
  1. ACCUTANE [Suspect]
     Indication: ACNE
     Dosage: 20 MG 3 PER DAY ORAL
     Route: 048
     Dates: start: 20041215, end: 20050608

REACTIONS (7)
  - BENIGN INTRACRANIAL HYPERTENSION [None]
  - EYE PAIN [None]
  - HEADACHE [None]
  - LIP DRY [None]
  - PAIN [None]
  - VISION BLURRED [None]
  - VISUAL DISTURBANCE [None]
